FAERS Safety Report 8239325-0 (Version None)
Quarter: 2012Q1

REPORT INFORMATION
  Report Type: 
  Country: None (occurrence: None)
  Receive Date: 20120326
  Receipt Date: 20120313
  Transmission Date: 20120608
  Serious: Yes (Other)
  Sender: FDA-Public Use
  Company Number: 1226022

PATIENT
  Age: 17 Year
  Sex: Male

DRUGS (1)
  1. LIDOCAINE HCL [Suspect]
     Indication: LOCAL ANAESTHESIA
     Dosage: UNKNOWN

REACTIONS (4)
  - SKIN EXFOLIATION [None]
  - HYPOAESTHESIA [None]
  - WRONG TECHNIQUE IN DRUG USAGE PROCESS [None]
  - SKIN DISCOLOURATION [None]
